FAERS Safety Report 5473834-2 (Version None)
Quarter: 2007Q4

REPORT INFORMATION
  Report Type: 
  Country: None (occurrence: None)
  Receive Date: 20071001
  Receipt Date: 20070919
  Transmission Date: 20080405
  Serious: Yes (Other)
  Sender: FDA-Public Use
  Company Number: US-PFIZER INC-2007074852

PATIENT
  Age: 29 Year
  Sex: Female

DRUGS (5)
  1. GEODON [Suspect]
  2. EFFEXOR XR [Concomitant]
     Dosage: DAILY DOSE:150MG
  3. SEROQUEL [Concomitant]
     Dosage: DAILY DOSE:600MG
  4. LAMICTAL [Concomitant]
     Indication: CONVULSION
     Dosage: DAILY DOSE:400MG
  5. TRILEPTAL [Concomitant]
     Indication: CONVULSION
     Dosage: DAILY DOSE:1200MG

REACTIONS (3)
  - BLINDNESS [None]
  - CONVULSION [None]
  - PUPILLARY REFLEX IMPAIRED [None]
